FAERS Safety Report 18946773 (Version 1)
Quarter: 2021Q1

REPORT INFORMATION
  Report Type: Spontaneous
  Country: US (occurrence: US)
  Receive Date: 20210226
  Receipt Date: 20210226
  Transmission Date: 20210420
  Serious: No
  Sender: FDA-Public Use
  Company Number: US-EVOLUS, INC.-2020EV000636

PATIENT
  Age: 67 Year
  Sex: Female

DRUGS (1)
  1. JEUVEAU [Suspect]
     Active Substance: PRABOTULINUMTOXINA-XVFS
     Indication: PRODUCT USED FOR UNKNOWN INDICATION
     Dosage: 22 UNITS AROUND NECK AND 5 UNITS UPPER LIP
     Dates: start: 20201117

REACTIONS (4)
  - Off label use [Unknown]
  - Eye irritation [Unknown]
  - Skin tightness [Unknown]
  - Feeling abnormal [Unknown]
